FAERS Safety Report 8257638-3 (Version None)
Quarter: 2012Q2

REPORT INFORMATION
  Report Type: 
  Country: None (occurrence: None)
  Receive Date: 20120403
  Receipt Date: 20120330
  Transmission Date: 20120825
  Serious: Yes (Death, Hospitalization)
  Sender: FDA-Public Use
  Company Number: GB-MERCK-1204GBR00005

PATIENT
  Age: 58 Year
  Sex: Male
  Weight: 52 kg

DRUGS (11)
  1. INSULIN ASPART, BIPHASIC ISOPHANE [INJECTION] [Concomitant]
     Indication: DIABETES MELLITUS
     Route: 058
  2. ZOCOR [Suspect]
     Indication: BLOOD CHOLESTEROL INCREASED
     Route: 048
     Dates: end: 20120303
  3. LOPERAMIDE HYDROCHLORIDE [Concomitant]
     Indication: DIARRHOEA
     Route: 065
     Dates: end: 20120318
  4. CYCLOSPORINE [Concomitant]
     Indication: RENAL TRANSPLANT
     Route: 048
     Dates: end: 20120318
  5. LANOLIN AND MINERAL OIL AND PETROLATUM [Concomitant]
     Route: 061
  6. LEVOTHYROXINE SODIUM [Concomitant]
     Indication: HYPOTHYROIDISM
     Route: 048
     Dates: end: 20120318
  7. ACETAMINOPHEN AND CODEINE PHOSPHATE [Concomitant]
     Indication: ANALGESIC THERAPY
     Route: 065
  8. FERROUS FUMARATE [Concomitant]
     Indication: ANAEMIA
     Route: 065
     Dates: end: 20120318
  9. ASPIRIN [Concomitant]
     Indication: CORONARY ARTERY DISEASE
     Route: 048
     Dates: end: 20120318
  10. DOMPERIDONE [Concomitant]
     Indication: MALAISE
     Route: 065
     Dates: end: 20120318
  11. FUROSEMIDE [Concomitant]
     Indication: CARDIAC FAILURE CONGESTIVE
     Route: 065
     Dates: end: 20120318

REACTIONS (3)
  - RHABDOMYOLYSIS [None]
  - HYPERKALAEMIA [None]
  - TRANSPLANT FAILURE [None]
